FAERS Safety Report 20507146 (Version 1)
Quarter: 2022Q1

REPORT INFORMATION
  Report Type: Spontaneous
  Country: US (occurrence: US)
  Receive Date: 20220223
  Receipt Date: 20220223
  Transmission Date: 20220423
  Serious: No
  Sender: FDA-Public Use
  Company Number: US-PERRIGO-21US032309

PATIENT
  Age: 86 Year
  Sex: Female
  Weight: 63.492 kg

DRUGS (10)
  1. DICLOFENAC SODIUM [Suspect]
     Active Substance: DICLOFENAC SODIUM
     Indication: Arthritis
     Dosage: UNKNOWN TO HIPS AND HANDS, SINGLE
     Route: 061
     Dates: start: 20211202, end: 20211202
  2. DICLOFENAC SODIUM [Suspect]
     Active Substance: DICLOFENAC SODIUM
     Dosage: 4 G TO HIPS AND UNKNOWN AMOUNT RUBBED INTO HANDS, 1 TO 2 TIMES DAILY
     Route: 061
     Dates: start: 20211203, end: 20211207
  3. CLOPIDOGREL [Concomitant]
     Active Substance: CLOPIDOGREL BISULFATE
     Indication: Anticoagulant therapy
     Dosage: UNK
     Route: 065
     Dates: start: 202110
  4. CARVEDILOL [Concomitant]
     Active Substance: CARVEDILOL
     Indication: Hypertension
     Dosage: UNK
     Route: 065
  5. HYDRALAZINE [Concomitant]
     Active Substance: HYDRALAZINE HYDROCHLORIDE
     Indication: Hypertension
     Dosage: 25 MG, PRN
     Route: 065
     Dates: start: 202110
  6. UNSPECIFIED INGREDIENT [Concomitant]
     Active Substance: UNSPECIFIED INGREDIENT
     Indication: Gastrooesophageal reflux disease
     Dosage: UNK
     Route: 065
  7. NORCO [Concomitant]
     Active Substance: ACETAMINOPHEN\HYDROCODONE BITARTRATE
     Indication: Pain
     Dosage: UNK, TID
     Route: 065
     Dates: start: 20211206
  8. NORCO [Concomitant]
     Active Substance: ACETAMINOPHEN\HYDROCODONE BITARTRATE
     Dosage: UNK, BID
     Route: 065
     Dates: start: 202110, end: 20211206
  9. TYLENOL 8HR [Concomitant]
     Active Substance: ACETAMINOPHEN
     Indication: Pain
     Dosage: 500 MG, PRN
     Route: 048
     Dates: start: 202006
  10. ASPIRIN [Concomitant]
     Active Substance: ASPIRIN
     Indication: Routine health maintenance
     Dosage: UNK
     Route: 065
     Dates: start: 202110

REACTIONS (5)
  - Skin discolouration [Recovering/Resolving]
  - Wrong technique in product usage process [Recovered/Resolved]
  - Incorrect dose administered [Recovered/Resolved]
  - Product administration error [Recovered/Resolved]
  - Product administered at inappropriate site [Recovered/Resolved]

NARRATIVE: CASE EVENT DATE: 20211202
